FAERS Safety Report 15128711 (Version 3)
Quarter: 2018Q3

REPORT INFORMATION
  Report Type: Report from Study
  Country: CA (occurrence: CA)
  Receive Date: 20180711
  Receipt Date: 20180728
  Transmission Date: 20181010
  Serious: Yes (Other)
  Sender: FDA-Public Use
  Company Number: CA-HLSUS-2017-CA-001214

PATIENT
  Age: 67 Year
  Sex: Female

DRUGS (1)
  1. CLOZARIL [Suspect]
     Active Substance: CLOZAPINE
     Route: 048
     Dates: start: 20080708

REACTIONS (6)
  - Lung infection [Unknown]
  - Pyrexia [Recovered/Resolved]
  - Antipsychotic drug level increased [Unknown]
  - Influenza like illness [Recovered/Resolved]
  - Body temperature increased [Unknown]
  - Malaise [Unknown]

NARRATIVE: CASE EVENT DATE: 20180703
